FAERS Safety Report 13181572 (Version 1)
Quarter: 2017Q1

REPORT INFORMATION
  Report Type: Report from Study
  Country: None (occurrence: BR)
  Receive Date: 20170202
  Receipt Date: 20170202
  Transmission Date: 20170428
  Serious: Yes (Other)
  Sender: FDA-Public Use
  Company Number: BR-ABBVIE-17P-020-1858017-00

PATIENT
  Age: 40 Year
  Weight: 87 kg

DRUGS (1)
  1. HUMIRA [Suspect]
     Active Substance: ADALIMUMAB
     Indication: ANKYLOSING SPONDYLITIS
     Route: 058
     Dates: start: 20160928

REACTIONS (6)
  - Depression [Recovered/Resolved]
  - Seizure [Unknown]
  - Pneumonia [Recovered/Resolved]
  - Laboratory test abnormal [Unknown]
  - Drug ineffective [Not Recovered/Not Resolved]
  - Weight decreased [Recovered/Resolved]

NARRATIVE: CASE EVENT DATE: 20161231
